FAERS Safety Report 5739709-6 (Version None)
Quarter: 2008Q2

REPORT INFORMATION
  Report Type: 
  Country: None (occurrence: None)
  Receive Date: 20080513
  Receipt Date: 20080502
  Transmission Date: 20081010
  Serious: Yes (Life-Threatening, Hospitalization, Disabling, Other)
  Sender: FDA-Public Use
  Company Number: WAES 0804DEU00125

PATIENT
  Age: 48 Year
  Sex: Female

DRUGS (1)
  1. CAP VORINOSTAT [Suspect]
     Indication: MYCOSIS FUNGOIDES
     Dosage: 400 MG PO
     Route: 048
     Dates: start: 20080321, end: 20080420

REACTIONS (7)
  - ARTHRALGIA [None]
  - BONE METABOLISM DISORDER [None]
  - CONDITION AGGRAVATED [None]
  - HYPERCALCAEMIA [None]
  - MYCOSIS FUNGOIDES [None]
  - RENAL FAILURE [None]
  - WEIGHT DECREASED [None]
